FAERS Safety Report 6061350-9 (Version None)
Quarter: 2009Q1

REPORT INFORMATION
  Report Type: 
  Country: None (occurrence: None)
  Receive Date: 20090130
  Receipt Date: 20090130
  Transmission Date: 20090719
  Serious: Yes (Other)
  Sender: FDA-Public Use
  Company Number: None

PATIENT
  Age: 60 Year
  Sex: Male
  Weight: 97.5234 kg

DRUGS (1)
  1. METOPROLOL SUCCINATE [Suspect]
     Indication: HEART RATE IRREGULAR
     Dosage: 1 100MG TAB DAILY PO
     Route: 048
     Dates: start: 20071019, end: 20080322

REACTIONS (4)
  - FATIGUE [None]
  - HEART RATE DECREASED [None]
  - MALAISE [None]
  - PRODUCT QUALITY ISSUE [None]
